FAERS Safety Report 13567256 (Version 1)
Quarter: 2017Q2

REPORT INFORMATION
  Report Type: Other
  Country: CA (occurrence: CA)
  Receive Date: 20170522
  Receipt Date: 20170522
  Transmission Date: 20170830
  Serious: Yes (Hospitalization, Other)
  Sender: FDA-Public Use
  Company Number: CA-APOTEX-2017AP009149

PATIENT
  Age: 51 Year
  Sex: Female

DRUGS (3)
  1. DURAGESIC [Concomitant]
     Active Substance: FENTANYL
     Indication: PRODUCT USED FOR UNKNOWN INDICATION
     Dosage: 100 ?G, Q.H.
     Route: 065
  2. FERROUS GLUCONATE [Concomitant]
     Active Substance: FERROUS GLUCONATE
     Indication: PRODUCT USED FOR UNKNOWN INDICATION
     Dosage: 300 MG, UNK
     Route: 065
  3. APO-DULOXETINE [Suspect]
     Active Substance: DULOXETINE
     Indication: MAJOR DEPRESSION
     Dosage: 60 MG, QD
     Route: 065

REACTIONS (3)
  - Crohn^s disease [Recovered/Resolved]
  - Abdominal adhesions [Recovered/Resolved]
  - Intestinal obstruction [Recovered/Resolved]
